FAERS Safety Report 10094149 (Version 2)
Quarter: 2014Q2

REPORT INFORMATION
  Report Type: Spontaneous
  Country: US (occurrence: US)
  Receive Date: 20140422
  Receipt Date: 20140623
  Transmission Date: 20141212
  Serious: Yes (Hospitalization)
  Sender: FDA-Public Use
  Company Number: US-BRISTOL-MYERS SQUIBB COMPANY-20625133

PATIENT
  Age: 66 Year
  Sex: Female

DRUGS (2)
  1. COUMADIN [Suspect]
     Route: 065
  2. HUMIRA [Suspect]
     Indication: RHEUMATOID ARTHRITIS
     Dosage: SOILUTION FOR INJECTION IN PREFILLED PEN
     Route: 065
     Dates: start: 20131108

REACTIONS (4)
  - Drug level fluctuating [Unknown]
  - Oedema peripheral [Unknown]
  - Arthralgia [Unknown]
  - Diarrhoea [Unknown]
